FAERS Safety Report 4402275-1 (Version None)
Quarter: 2004Q3

REPORT INFORMATION
  Report Type: 
  Country: None (occurrence: None)
  Receive Date: 20040720
  Receipt Date: 20040716
  Transmission Date: 20050211
  Serious: Yes (Hospitalization)
  Sender: FDA-Public Use
  Company Number: 84

PATIENT
  Age: 54 Year
  Sex: Male

DRUGS (9)
  1. MELPHALAN [Suspect]
     Indication: MULTIPLE MYELOMA
     Route: 042
     Dates: start: 20040616
  2. THALIDOMIDE [Suspect]
     Indication: MULTIPLE MYELOMA
     Route: 048
     Dates: start: 20040407
  3. BORTEZOMIB [Concomitant]
  4. DEXAMETHASONE [Concomitant]
  5. THALIDOMIDE [Concomitant]
  6. CISPLATIN [Concomitant]
  7. ADRIAMYCIN PFS [Concomitant]
  8. CYCLOPHOSPHAMIDE [Concomitant]
  9. ETOPOSIDE [Concomitant]

REACTIONS (5)
  - BACTERAEMIA [None]
  - LOSS OF CONSCIOUSNESS [None]
  - MIGRAINE [None]
  - STAPHYLOCOCCAL INFECTION [None]
  - SYNCOPE [None]
